FAERS Safety Report 5616359-3 (Version None)
Quarter: 2008Q1

REPORT INFORMATION
  Report Type: 
  Country: None (occurrence: None)
  Receive Date: 20080205
  Receipt Date: 20080205
  Transmission Date: 20080703
  Serious: No
  Sender: FDA-Public Use
  Company Number: None

PATIENT
  Age: 51 Year
  Sex: Female
  Weight: 75.2971 kg

DRUGS (2)
  1. SYMBICORT [Suspect]
     Indication: ASTHMA
     Dosage: 1 PUFF DAILY PO
     Route: 048
     Dates: start: 20071218, end: 20071221
  2. PULMICORT FLEXHALER [Concomitant]

REACTIONS (6)
  - DRUG HYPERSENSITIVITY [None]
  - EYELID OEDEMA [None]
  - IDIOSYNCRATIC DRUG REACTION [None]
  - JOINT SWELLING [None]
  - OEDEMA PERIPHERAL [None]
  - VISION BLURRED [None]
